FAERS Safety Report 4850103-2 (Version None)
Quarter: 2005Q4

REPORT INFORMATION
  Report Type: 
  Country: None (occurrence: None)
  Receive Date: 20051107
  Receipt Date: 20050727
  Transmission Date: 20060501
  Serious: Yes (Other)
  Sender: FDA-Public Use
  Company Number: PHEH2005US08297

PATIENT
  Sex: Female

DRUGS (5)
  1. ESTROGEN (ESTROGENS) [Suspect]
     Indication: MENOPAUSAL SYMPTOMS
     Dates: start: 19930101, end: 20010101
  2. PROGESTERONE [Suspect]
     Indication: MENOPAUSAL SYMPTOMS
     Dates: start: 19930101, end: 20010101
  3. PREMARIN [Suspect]
     Indication: MENOPAUSAL SYMPTOMS
     Dates: start: 19930101, end: 20010101
  4. PROVERA [Suspect]
     Indication: MENOPAUSAL SYMPTOMS
     Dates: start: 19930101, end: 20010101
  5. PREMPRO [Suspect]
     Indication: MENOPAUSAL SYMPTOMS

REACTIONS (8)
  - ANXIETY [None]
  - BREAST CANCER [None]
  - BREAST MASS [None]
  - ECONOMIC PROBLEM [None]
  - LIFE EXPECTANCY SHORTENED [None]
  - PAIN [None]
  - PSYCHIATRIC SYMPTOM [None]
  - SCAR [None]
